FAERS Safety Report 10006318 (Version 3)
Quarter: 2014Q4

REPORT INFORMATION
  Report Type: Spontaneous
  Country: US (occurrence: US)
  Receive Date: 20140313
  Receipt Date: 20141118
  Transmission Date: 20150528
  Serious: Yes (Hospitalization)
  Sender: FDA-Public Use
  Company Number: US-BAYER-2014-036289

PATIENT
  Age: 41 Year
  Sex: Female
  Weight: 77.98 kg

DRUGS (6)
  1. HYDROCHLOROTHIAZIDE. [Concomitant]
     Active Substance: HYDROCHLOROTHIAZIDE
     Dosage: 25 MG, DAILY
     Route: 048
     Dates: start: 20060421, end: 20060720
  2. POTASSIUM CHLORIDE. [Concomitant]
     Active Substance: POTASSIUM CHLORIDE
  3. POTASSIUM CITRATE. [Concomitant]
     Active Substance: POTASSIUM CITRATE
     Dosage: 10 MEQ,TWICE DAILY
  4. YASMIN [Suspect]
     Active Substance: DROSPIRENONE\ETHINYL ESTRADIOL
     Dosage: UNK
     Dates: start: 200603, end: 200607
  5. UROCIT-K [Concomitant]
     Active Substance: POTASSIUM CITRATE
     Dosage: 1080 MG, BID
     Route: 048
     Dates: start: 20060518, end: 20060720
  6. ZOLOFT [Concomitant]
     Active Substance: SERTRALINE HYDROCHLORIDE
     Dosage: 50 MG, DAILY
     Route: 048
     Dates: start: 20060304, end: 20060720

REACTIONS (9)
  - Anxiety [None]
  - Emotional distress [None]
  - Drooling [None]
  - General physical health deterioration [None]
  - Cerebrovascular accident [None]
  - Pain [None]
  - Abdominal pain [None]
  - Injury [None]
  - Memory impairment [None]

NARRATIVE: CASE EVENT DATE: 200607
